FAERS Safety Report 9254413 (Version 2)
Quarter: 2013Q2

REPORT INFORMATION
  Report Type: Spontaneous
  Country: US (occurrence: None)
  Receive Date: 20130422
  Receipt Date: 20130429
  Transmission Date: 20140414
  Serious: Yes (Other)
  Sender: FDA-Public Use
  Company Number: 7205920

PATIENT
  Age: 66 Year
  Sex: Female

DRUGS (5)
  1. LEVOTHYROXINE (LEVOTHYROXINE) [Suspect]
     Indication: PRODUCT USED FOR UNKNOWN INDICATION
  2. IBUPROFEN (IBUPROFEN) [Suspect]
     Indication: PRODUCT USED FOR UNKNOWN INDICATION
  3. MECLIZINE (MECLOZINE) [Concomitant]
  4. OMEPRAZOL (OMEPRAZOLE) [Concomitant]
  5. LISINOPRIL(LISINOPRIL) [Concomitant]

REACTIONS (8)
  - Nausea [None]
  - Vomiting [None]
  - Headache [None]
  - Blood pressure increased [None]
  - Blood creatinine increased [None]
  - Blood potassium increased [None]
  - Tubulointerstitial nephritis [None]
  - Renal failure acute [None]
